FAERS Safety Report 21781883 (Version 1)
Quarter: 2022Q4

REPORT INFORMATION
  Report Type: Other
  Country: GB (occurrence: GB)
  Receive Date: 20221227
  Receipt Date: 20221227
  Transmission Date: 20230113
  Serious: Yes (Other)
  Sender: FDA-Public Use
  Company Number: GB-BoehringerIngelheim-2022-BI-209052

PATIENT

DRUGS (2)
  1. ALTEPLASE [Suspect]
     Active Substance: ALTEPLASE
     Indication: Pleural infection
     Route: 065
  2. DEOXYRIBONUCLEASE [Concomitant]
     Indication: Pleural infection

REACTIONS (2)
  - Haemothorax [Unknown]
  - Off label use [Unknown]
